FAERS Safety Report 25372482 (Version 1)
Quarter: 2025Q2

REPORT INFORMATION
  Report Type: Spontaneous
  Country: IT (occurrence: IT)
  Receive Date: 20250529
  Receipt Date: 20250529
  Transmission Date: 20250717
  Serious: Yes (Hospitalization, Other)
  Sender: SANDOZ
  Company Number: None

PATIENT
  Age: 59 Year
  Sex: Female

DRUGS (4)
  1. PANTOPRAZOLE [Suspect]
     Active Substance: PANTOPRAZOLE
     Indication: Gastrointestinal disorder prophylaxis
     Dosage: 1 DF, QD,20 MG 1 TABLET/DAY
     Route: 048
  2. TAGRISSO [Suspect]
     Active Substance: OSIMERTINIB
     Indication: Lung adenocarcinoma stage IV
     Dosage: 1 DF, QD,80 MG 1 TABLET/DAY
     Route: 048
     Dates: start: 20230728
  3. EN [Concomitant]
     Active Substance: DELORAZEPAM
     Indication: Anxiety
     Route: 048
  4. Folina [Concomitant]
     Indication: Folate deficiency
     Route: 048

REACTIONS (2)
  - Cardiomyopathy [Recovered/Resolved]
  - Acute pulmonary oedema [Recovered/Resolved]

NARRATIVE: CASE EVENT DATE: 20230920
